FAERS Safety Report 4830239-2 (Version None)
Quarter: 2005Q4

REPORT INFORMATION
  Report Type: 
  Country: None (occurrence: None)
  Receive Date: 20051117
  Receipt Date: 20051109
  Transmission Date: 20060501
  Serious: Yes (Other)
  Sender: FDA-Public Use
  Company Number: US-GLAXOSMITHKLINE-A0581609A

PATIENT
  Sex: Male

DRUGS (2)
  1. COREG [Suspect]
     Indication: DRUG USE FOR UNKNOWN INDICATION
     Route: 048
  2. UNSPECIFIED MEDICATIONS [Concomitant]

REACTIONS (3)
  - ALOPECIA [None]
  - MOOD ALTERED [None]
  - PSORIASIS [None]
